FAERS Safety Report 5525201-0 (Version None)
Quarter: 2007Q4

REPORT INFORMATION
  Report Type: 
  Country: None (occurrence: None)
  Receive Date: 20071114
  Receipt Date: 20070714
  Transmission Date: 20080405
  Serious: Yes (Hospitalization)
  Sender: FDA-Public Use
  Company Number: ALK_00300_2007

PATIENT
  Sex: Female
  Weight: 94.3482 kg

DRUGS (17)
  1. VIVITROL [Suspect]
     Indication: ALCOHOLISM
     Dosage: (380 MG 1X/MONTH INTRAMUSCULAR)
     Route: 030
     Dates: start: 20070712
  2. METHADONE HCL [Suspect]
     Indication: DRUG USE FOR UNKNOWN INDICATION
     Dosage: (DF)
  3. OXYCODONE 5 MG [Suspect]
     Indication: DRUG USE FOR UNKNOWN INDICATION
     Dosage: (5 MG TID PRN ORAL)
     Route: 048
  4. LEXAPRO [Concomitant]
  5. HUMALOG [Concomitant]
  6. KLONOPIN [Concomitant]
  7. GLYBURIDE [Concomitant]
  8. LASIX [Concomitant]
  9. SPIRONOLACTONE [Concomitant]
  10. PREVACID [Concomitant]
  11. METOLAZONE [Concomitant]
  12. AMITRIPTLINE HCL [Concomitant]
  13. PROMETHAZINE [Concomitant]
  14. VICODIN [Concomitant]
  15. METOPROLOL SUCCINATE [Concomitant]
  16. FOLIC ACID [Concomitant]
  17. KLOR-CON [Concomitant]

REACTIONS (3)
  - DRUG INTERACTION [None]
  - DRUG WITHDRAWAL SYNDROME [None]
  - SNEEZING [None]
